FAERS Safety Report 8398811-3 (Version None)
Quarter: 2012Q2

REPORT INFORMATION
  Report Type: 
  Country: None (occurrence: None)
  Receive Date: 20120531
  Receipt Date: 20120516
  Transmission Date: 20120825
  Serious: Yes (Hospitalization, Other)
  Sender: FDA-Public Use
  Company Number: CA-ROCHE-664981

PATIENT
  Sex: Male
  Weight: 90 kg

DRUGS (5)
  1. PREDNISONE TAB [Suspect]
     Route: 048
     Dates: start: 20070828, end: 20071008
  2. RITUXIMAB [Suspect]
     Indication: FOCAL SEGMENTAL GLOMERULOSCLEROSIS
  3. RITUXIMAB [Suspect]
  4. RITUXIMAB [Suspect]
  5. PREDNISONE TAB [Suspect]
     Indication: NEPHROTIC SYNDROME
     Route: 048
     Dates: start: 20070627, end: 20070827

REACTIONS (31)
  - SKIN STRIAE [None]
  - BLOOD IMMUNOGLOBULIN G DECREASED [None]
  - FATIGUE [None]
  - HYPERTENSION [None]
  - CHEST PAIN [None]
  - FOCAL SEGMENTAL GLOMERULOSCLEROSIS [None]
  - INTERSTITIAL LUNG DISEASE [None]
  - PNEUMONIA BACTERIAL [None]
  - PYREXIA [None]
  - OVERWEIGHT [None]
  - PROTEINURIA [None]
  - CUSHINGOID [None]
  - ACNE [None]
  - GINGIVAL HYPERPLASIA [None]
  - BAND NEUTROPHIL COUNT INCREASED [None]
  - HYPERHIDROSIS [None]
  - TRAUMATIC LUNG INJURY [None]
  - NEPHROTIC SYNDROME [None]
  - TACHYCARDIA [None]
  - HIRSUTISM [None]
  - ADRENAL INSUFFICIENCY [None]
  - KIDNEY FIBROSIS [None]
  - NEUTROPHIL COUNT DECREASED [None]
  - OEDEMA [None]
  - PULMONARY TOXICITY [None]
  - TACHYPNOEA [None]
  - WHITE BLOOD CELL COUNT INCREASED [None]
  - DYSPNOEA [None]
  - HYPOALBUMINAEMIA [None]
  - HYPOXIA [None]
  - LYMPHOCYTE COUNT DECREASED [None]
